FAERS Safety Report 6030332-5 (Version None)
Quarter: 2009Q1

REPORT INFORMATION
  Report Type: 
  Country: None (occurrence: None)
  Receive Date: 20090107
  Receipt Date: 20080728
  Transmission Date: 20090719
  Serious: No
  Sender: FDA-Public Use
  Company Number: US-BAYER-200813207BCC

PATIENT
  Age: 69 Year
  Sex: Male
  Weight: 73 kg

DRUGS (4)
  1. ALEVE [Suspect]
     Indication: ARTHRALGIA
     Dosage: TOTAL DAILY DOSE: 440 MG  UNIT DOSE: 220 MG
     Dates: start: 20080501
  2. TOPROL-XL [Concomitant]
  3. PROTONIX [Concomitant]
  4. MULTI-VITAMIN [Concomitant]

REACTIONS (1)
  - ABDOMINAL DISCOMFORT [None]
